FAERS Safety Report 5008402-X (Version None)
Quarter: 2006Q2

REPORT INFORMATION
  Report Type: 
  Country: None (occurrence: None)
  Receive Date: 20060523
  Receipt Date: 20060516
  Transmission Date: 20061013
  Serious: Yes (Disabling)
  Sender: FDA-Public Use
  Company Number: PHRM2006FR01581

PATIENT
  Age: 81 Year
  Sex: Female

DRUGS (2)
  1. LYTOS [Suspect]
     Dosage: 2 DF DAILY
     Route: 048
     Dates: start: 20041015, end: 20060315
  2. ZOMETA [Suspect]
     Dosage: 4 MG, QMO
     Route: 042
     Dates: start: 20030606, end: 20060410

REACTIONS (3)
  - BONE DISORDER [None]
  - IMPAIRED HEALING [None]
  - TOOTH EXTRACTION [None]
